FAERS Safety Report 17065341 (Version 1)
Quarter: 2019Q4

REPORT INFORMATION
  Report Type: Spontaneous
  Country: US (occurrence: US)
  Receive Date: 20191122
  Receipt Date: 20191122
  Transmission Date: 20200122
  Serious: No
  Sender: FDA-Public Use
  Company Number: None

PATIENT
  Age: 68 Year
  Sex: Female

DRUGS (2)
  1. INLYTA [Suspect]
     Active Substance: AXITINIB
     Indication: RENAL CELL CARCINOMA
     Route: 048
     Dates: start: 20191106
  2. INLYTA [Concomitant]
     Active Substance: AXITINIB
     Dates: start: 20191106, end: 20191122

REACTIONS (2)
  - Oral discomfort [None]
  - Lip dry [None]

NARRATIVE: CASE EVENT DATE: 20191110
